FAERS Safety Report 5421238-0 (Version None)
Quarter: 2007Q3

REPORT INFORMATION
  Report Type: 
  Country: None (occurrence: None)
  Receive Date: 20070821
  Receipt Date: 20070813
  Transmission Date: 20080115
  Serious: Yes (Death, Hospitalization)
  Sender: FDA-Public Use
  Company Number: US-SANOFI-SYNTHELABO-A03200703530

PATIENT
  Sex: Male
  Weight: 88.5 kg

DRUGS (16)
  1. PLAVIX [Suspect]
     Indication: STENT PLACEMENT
     Route: 048
     Dates: start: 20060801, end: 20061101
  2. PLAVIX [Suspect]
     Route: 048
     Dates: end: 20070101
  3. TRAZODONE HCL [Concomitant]
     Indication: SLEEP DISORDER
     Dosage: UNK
     Route: 065
  4. GLYBURIDE [Concomitant]
     Dosage: UNK
     Route: 065
  5. DISULFIRAM [Concomitant]
     Dosage: UNK
     Route: 065
  6. ACARBOSE [Concomitant]
     Dosage: UNK
     Route: 065
  7. SIMVASTATIN [Concomitant]
     Dosage: UNK
     Route: 065
  8. FOLIC ACID [Concomitant]
     Dosage: UNK
     Route: 065
  9. ATENOLOL [Concomitant]
     Dosage: UNK
     Route: 065
  10. THIAMINE HCL [Concomitant]
     Dosage: UNK
     Route: 065
  11. METFORMIN HCL [Concomitant]
     Dosage: UNK
     Route: 065
  12. LISINOPRIL [Concomitant]
     Dosage: UNK
     Route: 065
  13. DIOVAN [Concomitant]
     Dosage: UNK
     Route: 065
  14. FELODIPINE [Concomitant]
     Dosage: UNK
     Route: 065
  15. ASPIRIN [Concomitant]
     Dosage: UNK
     Route: 065
  16. ISOSORBIDE DINITRATE [Concomitant]
     Dosage: UNK
     Route: 065

REACTIONS (6)
  - ASPIRATION [None]
  - CORONARY ARTERY OCCLUSION [None]
  - DYSPNOEA [None]
  - HEPATIC FAILURE [None]
  - MYOCARDIAL INFARCTION [None]
  - RENAL FAILURE [None]
